FAERS Safety Report 5921512-5 (Version None)
Quarter: 2008Q4

REPORT INFORMATION
  Report Type: 
  Country: None (occurrence: None)
  Receive Date: 20081017
  Receipt Date: 20081008
  Transmission Date: 20090506
  Serious: Yes (Other)
  Sender: FDA-Public Use
  Company Number: SE-JNJFOC-20080605463

PATIENT
  Age: 9 Decade
  Sex: Female

DRUGS (1)
  1. HALDOL [Suspect]
     Indication: HALLUCINATION
     Dosage: 1-2 MG
     Route: 048

REACTIONS (1)
  - PARKINSONISM [None]
